FAERS Safety Report 20255727 (Version 1)
Quarter: 2021Q4

REPORT INFORMATION
  Report Type: Spontaneous
  Country: GB (occurrence: GB)
  Receive Date: 20211230
  Receipt Date: 20211230
  Transmission Date: 20220303
  Serious: Yes (Other)
  Sender: FDA-Public Use
  Company Number: None

PATIENT
  Age: 58 Year
  Sex: Female
  Weight: 58 kg

DRUGS (7)
  1. SIMVASTATIN [Suspect]
     Active Substance: SIMVASTATIN
     Route: 048
  2. AMLODIPINE [Concomitant]
     Active Substance: AMLODIPINE BESYLATE
     Dates: start: 20211103
  3. CETRABEN EMOLLIENT CREAM [Concomitant]
     Dosage: APPLTDS UNTIL SEEN BY DERMATOLOGY
     Dates: start: 20211103
  4. DERMOL [Concomitant]
     Active Substance: BENZALKONIUM CHLORIDE\CHLORHEXIDINE HYDROCHLORIDE\ISOPROPYL MYRISTATE\PARAFFIN
     Dosage: USE EVERY DAY AS SOAP SUBSTITUTE UNTIL SEEN BY DERMATOLOGY
     Dates: start: 20211103
  5. MOMETASONE [Concomitant]
     Active Substance: MOMETASONE
     Dosage: APPLY THINLY ONCE DAILY AT NIGHT FOR 10 DAYS THEN ONCE A WEEK EVERY MONTH
     Dates: start: 20211103
  6. RAMIPRIL [Concomitant]
     Active Substance: RAMIPRIL
     Dosage: REDUCING REGIME AS PLANNED
     Dates: start: 20211103
  7. ROSUVASTATIN [Concomitant]
     Active Substance: ROSUVASTATIN
     Dates: start: 20211217

REACTIONS (1)
  - Gastritis [Recovered/Resolved]

NARRATIVE: CASE EVENT DATE: 20210727
